FAERS Safety Report 19027749 (Version 5)
Quarter: 2025Q3

REPORT INFORMATION
  Report Type: Report from Study
  Country: US (occurrence: US)
  Receive Date: 20210318
  Receipt Date: 20250709
  Transmission Date: 20251021
  Serious: Yes (Hospitalization, Other)
  Sender: TAKEDA
  Company Number: US-TAKEDA-2021TUS009099

PATIENT
  Sex: Male

DRUGS (5)
  1. PONATINIB [Suspect]
     Active Substance: PONATINIB
     Indication: Chronic myeloid leukaemia
     Dosage: 30 MILLIGRAM, QD
     Dates: start: 202009
  2. PONATINIB [Suspect]
     Active Substance: PONATINIB
     Dosage: 30 MILLIGRAM, QD
  3. SPRYCEL [Concomitant]
     Active Substance: DASATINIB
  4. AMBRISENTAN [Concomitant]
     Active Substance: AMBRISENTAN
  5. XARELTO [Concomitant]
     Active Substance: RIVAROXABAN

REACTIONS (6)
  - Pulmonary embolism [Unknown]
  - Loss of consciousness [Unknown]
  - Incorrect dose administered [Unknown]
  - Product use issue [Unknown]
  - Dyspnoea [Unknown]
  - Product dose omission issue [Unknown]
